FAERS Safety Report 20516046 (Version 1)
Quarter: 2022Q1

REPORT INFORMATION
  Report Type: Spontaneous
  Country: CN (occurrence: CN)
  Receive Date: 20220225
  Receipt Date: 20220225
  Transmission Date: 20220424
  Serious: Yes (Hospitalization)
  Sender: FDA-Public Use
  Company Number: CN-MSNLABS-2022MSNLIT00168

PATIENT

DRUGS (9)
  1. CAPECITABINE [Suspect]
     Active Substance: CAPECITABINE
     Indication: Breast cancer
     Dosage: D1-14
     Route: 065
     Dates: start: 20190930
  2. PACLITAXEL [Suspect]
     Active Substance: PACLITAXEL
     Indication: Breast cancer
     Dosage: 5 CYCLES
     Route: 065
     Dates: start: 20190225, end: 20190521
  3. PACLITAXEL [Suspect]
     Active Substance: PACLITAXEL
     Route: 065
  4. FULVESTRANT [Suspect]
     Active Substance: FULVESTRANT
     Indication: Breast cancer
     Dosage: 6 TO 11 CYCLES
     Route: 065
     Dates: start: 20190930, end: 20200214
  5. FULVESTRANT [Suspect]
     Active Substance: FULVESTRANT
     Dosage: 5 CYCLES
     Route: 065
     Dates: end: 20190902
  6. INVESTIGATIONAL PRODUCT [Suspect]
     Active Substance: INVESTIGATIONAL PRODUCT
     Indication: Breast cancer
     Route: 065
     Dates: start: 20200327
  7. PACLITAXEL [Suspect]
     Active Substance: PACLITAXEL
     Indication: Breast cancer
     Dosage: 2 CYCLES
     Route: 065
     Dates: start: 20200604
  8. ERIBULIN [Suspect]
     Active Substance: ERIBULIN
     Indication: Breast cancer
     Dosage: 4 CYCLES
     Route: 065
     Dates: start: 20200810, end: 20201012
  9. INVESTIGATIONAL PRODUCT [Suspect]
     Active Substance: INVESTIGATIONAL PRODUCT
     Indication: Breast cancer
     Route: 065
     Dates: end: 20210511

REACTIONS (1)
  - Disease progression [Unknown]

NARRATIVE: CASE EVENT DATE: 20200312
